FAERS Safety Report 7259114-3 (Version None)
Quarter: 2011Q1

REPORT INFORMATION
  Report Type: 
  Country: None (occurrence: None)
  Receive Date: 20110129
  Receipt Date: 20100811
  Transmission Date: 20110831
  Serious: No
  Sender: FDA-Public Use
  Company Number: US-ABBOTT-10P-163-0663891-00

PATIENT
  Age: 34 Year
  Sex: Female
  Weight: 52.21 kg

DRUGS (4)
  1. HUMIRA [Suspect]
     Indication: CROHN'S DISEASE
     Dates: start: 20100301, end: 20100520
  2. FLAGYL [Concomitant]
     Indication: DIARRHOEA
  3. MULTI-VITAMIN [Concomitant]
     Indication: VITAMIN SUPPLEMENTATION
  4. URSO 250 [Concomitant]
     Indication: CHOLANGITIS SCLEROSING

REACTIONS (2)
  - HYPOAESTHESIA [None]
  - PARAESTHESIA [None]
